FAERS Safety Report 21799651 (Version 1)
Quarter: 2022Q4

REPORT INFORMATION
  Report Type: Spontaneous
  Country: GB (occurrence: US)
  Receive Date: 20221230
  Receipt Date: 20221230
  Transmission Date: 20230113
  Serious: No
  Sender: FDA-Public Use
  Company Number: GB-009507513-2212USA011159

PATIENT
  Age: 13 Month
  Sex: Male

DRUGS (13)
  1. REBETOL [Suspect]
     Active Substance: RIBAVIRIN
     Indication: Antiviral treatment
     Dosage: UNK
  2. AMOXICILLIN [Concomitant]
     Active Substance: AMOXICILLIN
     Indication: Otitis media acute
  3. DEXAMETHASONE [Concomitant]
     Active Substance: DEXAMETHASONE
  4. EPINEPHRINE [Concomitant]
     Active Substance: EPINEPHRINE
     Indication: Stridor
  5. MEROPENEM [Concomitant]
     Active Substance: MEROPENEM
  6. VANCOMYCIN [Concomitant]
     Active Substance: VANCOMYCIN
  7. CIDOFOVIR [Concomitant]
     Active Substance: CIDOFOVIR
  8. ANAKINRA [Concomitant]
     Active Substance: ANAKINRA
  9. ACYCLOVIR [Concomitant]
     Active Substance: ACYCLOVIR
  10. LINEZOLID [Concomitant]
     Active Substance: LINEZOLID
  11. METHYLPREDNISOLONE [Concomitant]
     Active Substance: METHYLPREDNISOLONE
  12. PRIVIGEN [Concomitant]
     Active Substance: HUMAN IMMUNOGLOBULIN G
  13. VITAMIN A [Concomitant]
     Active Substance: VITAMIN A

REACTIONS (1)
  - Product use in unapproved indication [Unknown]
